FAERS Safety Report 7570129-8 (Version None)
Quarter: 2011Q2

REPORT INFORMATION
  Report Type: 
  Country: None (occurrence: None)
  Receive Date: 20110620
  Receipt Date: 20110610
  Transmission Date: 20111010
  Serious: Yes (Other)
  Sender: FDA-Public Use
  Company Number: ACO_25167_2011

PATIENT
  Age: 57 Year
  Sex: Male
  Weight: 83.9 kg

DRUGS (7)
  1. RISPERDAL [Concomitant]
  2. CO Q10 (UBIDECARENONE) [Concomitant]
  3. AMPYRA [Suspect]
     Indication: GAIT DISTURBANCE
     Dosage: 10 MG, BID, ORAL
     Route: 048
     Dates: start: 20101101
  4. BACLOFEN [Concomitant]
  5. REBIF [Suspect]
     Indication: PRODUCT USED FOR UNKNOWN INDICATION
  6. ASPIRIN [Concomitant]
  7. NUVIGIL [Concomitant]

REACTIONS (1)
  - CELLULITIS [None]
